FAERS Safety Report 7986394-9 (Version None)
Quarter: 2011Q4

REPORT INFORMATION
  Report Type: 
  Country: None (occurrence: None)
  Receive Date: 20111216
  Receipt Date: 20110620
  Transmission Date: 20120403
  Serious: No
  Sender: FDA-Public Use
  Company Number: US-GLAXOSMITHKLINE-A0932049A

PATIENT
  Age: 67 Year
  Sex: Female

DRUGS (3)
  1. CARDIZEM [Concomitant]
  2. COREG CR [Suspect]
     Indication: HYPERTENSION
     Dosage: 10MG PER DAY
     Route: 048
     Dates: start: 20110614
  3. ALTACE [Concomitant]

REACTIONS (4)
  - NAUSEA [None]
  - FEELING ABNORMAL [None]
  - DRUG INEFFECTIVE [None]
  - HYPOTENSION [None]
